FAERS Safety Report 6368791-0 (Version None)
Quarter: 2009Q3

REPORT INFORMATION
  Report Type: 
  Country: None (occurrence: None)
  Receive Date: 20090916
  Receipt Date: 20090910
  Transmission Date: 20100115
  Serious: Yes (Other)
  Sender: FDA-Public Use
  Company Number: 2009SP024929

PATIENT
  Sex: Female

DRUGS (2)
  1. MIRALAX [Suspect]
     Dosage: PO
     Route: 048
     Dates: start: 20090905
  2. LEVOTHYROXINE SODIUM [Concomitant]

REACTIONS (3)
  - ORAL PRURITUS [None]
  - PHARYNGEAL OEDEMA [None]
  - URTICARIA [None]
